FAERS Safety Report 18536482 (Version 1)
Quarter: 2020Q4

REPORT INFORMATION
  Report Type: Spontaneous
  Country: US (occurrence: US)
  Receive Date: 20201124
  Receipt Date: 20201124
  Transmission Date: 20210114
  Serious: No
  Sender: FDA-Public Use
  Company Number: US-JNJFOC-20201125362

PATIENT
  Sex: Female

DRUGS (1)
  1. ORTHO TRI CYCLEN LO [Suspect]
     Active Substance: ETHINYL ESTRADIOL\NORGESTIMATE
     Indication: HORMONE LEVEL ABNORMAL
     Dosage: EXPIRY: 12/2020 FOR A PRODUCT SHE GOT IN CANADA BUT NOT IN USA
     Route: 065

REACTIONS (4)
  - Hormone level abnormal [Unknown]
  - Off label use [Unknown]
  - Anxiety disorder [Unknown]
  - Product use in unapproved indication [Unknown]
